FAERS Safety Report 21925472 (Version 1)
Quarter: 2023Q1

REPORT INFORMATION
  Report Type: Spontaneous
  Country: US (occurrence: None)
  Receive Date: 20230127
  Receipt Date: 20230127
  Transmission Date: 20230417
  Serious: Yes (Death, Hospitalization)
  Sender: FDA-Public Use
  Company Number: None

PATIENT
  Age: 63 Year
  Sex: Male

DRUGS (1)
  1. AMBRISENTAN [Suspect]
     Active Substance: AMBRISENTAN
     Indication: Pulmonary hypertension
     Dosage: 10MG QD ORAL?
     Route: 048
     Dates: start: 20210315, end: 20221225

REACTIONS (6)
  - Hypotension [None]
  - Cardiogenic shock [None]
  - Dyspnoea [None]
  - Multiple organ dysfunction syndrome [None]
  - Pneumonia [None]
  - Renal mass [None]

NARRATIVE: CASE EVENT DATE: 20230126
